FAERS Safety Report 19006225 (Version 2)
Quarter: 2021Q2

REPORT INFORMATION
  Report Type: Spontaneous
  Country: US (occurrence: US)
  Receive Date: 20210315
  Receipt Date: 20210415
  Transmission Date: 20210717
  Serious: Yes (Other)
  Sender: FDA-Public Use
  Company Number: US-NOVEN PHARMACEUTICALS, INC.-2021US002148

PATIENT
  Sex: Male

DRUGS (1)
  1. DAYTRANA [Suspect]
     Active Substance: METHYLPHENIDATE
     Indication: PRODUCT USED FOR UNKNOWN INDICATION
     Dosage: 10MG/9 HOURS, UNKNOWN
     Route: 062
     Dates: end: 202102

REACTIONS (4)
  - No adverse event [Unknown]
  - Device difficult to use [Recovered/Resolved]
  - Device breakage [Recovered/Resolved]
  - Product adhesion issue [Recovered/Resolved]
